FAERS Safety Report 4681273-7 (Version None)
Quarter: 2005Q2

REPORT INFORMATION
  Report Type: 
  Country: None (occurrence: None)
  Receive Date: 20050603
  Receipt Date: 20050407
  Transmission Date: 20051028
  Serious: Yes (Death, Hospitalization)
  Sender: FDA-Public Use
  Company Number: US-ROCHE-401376

PATIENT
  Age: 60 Year
  Sex: Female

DRUGS (5)
  1. CAPECITABINE [Suspect]
     Route: 048
     Dates: start: 20050210, end: 20050214
  2. IXABEPILONE [Suspect]
     Route: 042
     Dates: start: 20050210
  3. ELAVIL [Concomitant]
     Dates: start: 20050107
  4. VICODIN [Concomitant]
     Dates: start: 20031215
  5. DURAGESIC-100 [Concomitant]
     Dates: start: 20050126

REACTIONS (6)
  - BREAST CANCER METASTATIC [None]
  - MALIGNANT NEOPLASM PROGRESSION [None]
  - MENTAL IMPAIRMENT [None]
  - NEUTROPENIA [None]
  - SEPSIS [None]
  - STAPHYLOCOCCAL INFECTION [None]
